FAERS Safety Report 7550686-8 (Version None)
Quarter: 2011Q2

REPORT INFORMATION
  Report Type: 
  Country: None (occurrence: None)
  Receive Date: 20110609
  Receipt Date: 20110524
  Transmission Date: 20111010
  Serious: Yes (Hospitalization)
  Sender: FDA-Public Use
  Company Number: 2011MA006393

PATIENT
  Age: 71 Year
  Sex: Male

DRUGS (3)
  1. WARFARIN SODIUM [Concomitant]
  2. VANCOMYCIN [Concomitant]
  3. RIFAMPIN [Suspect]
     Indication: DEVICE RELATED INFECTION
     Dosage: 600 MG;

REACTIONS (2)
  - INTERNATIONAL NORMALISED RATIO DECREASED [None]
  - DRUG INTERACTION [None]
